FAERS Safety Report 9267475 (Version 2)
Quarter: 2013Q2

REPORT INFORMATION
  Report Type: Spontaneous
  Country: JP (occurrence: JP)
  Receive Date: 20130502
  Receipt Date: 20130610
  Transmission Date: 20140414
  Serious: Yes (Hospitalization)
  Sender: FDA-Public Use
  Company Number: JP-ASTRAZENECA-2013SE27048

PATIENT
  Age: 28311 Day
  Sex: Male
  Weight: 65 kg

DRUGS (3)
  1. CRESTOR [Suspect]
     Indication: HYPERLIPIDAEMIA
     Route: 048
     Dates: start: 20101104, end: 20130215
  2. WARFARIN [Concomitant]
     Indication: ATRIAL FIBRILLATION
     Dosage: 3-5 MG ONCE DAILY
     Route: 048
     Dates: start: 20100721
  3. GASTER D [Concomitant]
     Route: 048
     Dates: start: 20100721

REACTIONS (1)
  - Interstitial lung disease [Recovering/Resolving]
